FAERS Safety Report 14487808 (Version 1)
Quarter: 2018Q1

REPORT INFORMATION
  Report Type: Report from Study
  Country: US (occurrence: US)
  Receive Date: 20180205
  Receipt Date: 20180205
  Transmission Date: 20180509
  Serious: Yes (Death)
  Sender: FDA-Public Use
  Company Number: US-PFIZER INC-2018045512

PATIENT

DRUGS (6)
  1. DEXAMETHASONE. [Suspect]
     Active Substance: DEXAMETHASONE
     Indication: ACUTE LYMPHOCYTIC LEUKAEMIA
     Dosage: 80 MG, CYCLIC (ON DAYS 1-4 AND 15-18 DURING CYCLES 1)
  2. PEGASPARGASE [Suspect]
     Active Substance: PEGASPARGASE
     Indication: ACUTE LYMPHOCYTIC LEUKAEMIA
     Dosage: 2500 UNITS/M^2, CYCLIC ON DAY 4 , THEN CHANGED TO DAY 18 CYCLES 1-8
     Route: 042
  3. RITUXIMAB. [Suspect]
     Active Substance: RITUXIMAB
     Indication: ACUTE LYMPHOCYTIC LEUKAEMIA
     Dosage: 375 MG/M2, CYCLIC (ON DAYS 1AND 15 OF CYCLES 1 TO 4)
  4. DEXAMETHASONE. [Suspect]
     Active Substance: DEXAMETHASONE
     Dosage: 40 MG, CYCLIC (3, 5, AND 7)
  5. VINCRISTINE SULFATE. [Suspect]
     Active Substance: VINCRISTINE SULFATE
     Indication: ACUTE LYMPHOCYTIC LEUKAEMIA
     Dosage: 1.4 MG/M2, CYCLIC (ON DAYS 1, 8, 15, 22 DURING CYCLE 1 AND ON DAYS 1,8, AND 15 DURING CYCLES 3, 5,7)
     Route: 042
  6. NELARABINE [Suspect]
     Active Substance: NELARABINE
     Indication: ACUTE LYMPHOCYTIC LEUKAEMIA
     Dosage: UNK, CYCLIC (CYCLES 4 AND 5, RESPECTIVELY, AND REPEATED DURING MAINTENANCE CYCLES 12 AND 24)

REACTIONS (1)
  - Septic shock [Fatal]
